FAERS Safety Report 19839715 (Version 1)
Quarter: 2021Q3

REPORT INFORMATION
  Report Type: Spontaneous
  Country: US (occurrence: US)
  Receive Date: 20210916
  Receipt Date: 20210916
  Transmission Date: 20211014
  Serious: No
  Sender: FDA-Public Use
  Company Number: US-BSC-2021000021

PATIENT
  Sex: Female
  Weight: 72.5 kg

DRUGS (3)
  1. VARITHENA [Suspect]
     Active Substance: POLIDOCANOL
     Dosage: VOLUME ADMINISTERED: 5  ML INTO RIGHT THIGH TRIBUTARY
     Dates: start: 20210305, end: 20210305
  2. VARITHENA [Suspect]
     Active Substance: POLIDOCANOL
     Dosage: VOLUME ADMINISTERED: 5  ML INTO RIGHT GSV THIGH
     Dates: start: 20210226, end: 20210226
  3. VARITHENA [Suspect]
     Active Substance: POLIDOCANOL
     Dosage: VOLUME ADMINISTERED: 5  ML INTO LEFT LEG TRIBUTARY
     Dates: start: 20210301, end: 20210301

REACTIONS (2)
  - Inappropriate schedule of product administration [Unknown]
  - Vision blurred [Recovered/Resolved]

NARRATIVE: CASE EVENT DATE: 20210226
